FAERS Safety Report 25293506 (Version 1)
Quarter: 2025Q2

REPORT INFORMATION
  Report Type: Spontaneous
  Country: US (occurrence: US)
  Receive Date: 20250510
  Receipt Date: 20250510
  Transmission Date: 20250716
  Serious: No
  Sender: SANOFI AVENTIS
  Company Number: US-SA-2025SA127306

PATIENT
  Age: 83 Year
  Sex: Female
  Weight: 50.91 kg

DRUGS (18)
  1. DUPIXENT [Suspect]
     Active Substance: DUPILUMAB
     Indication: Dermatitis atopic
     Dosage: 300MG, QOW
     Route: 058
     Dates: start: 202410
  2. DUPIXENT [Suspect]
     Active Substance: DUPILUMAB
     Indication: Thyroid disorder
  3. DUPIXENT [Suspect]
     Active Substance: DUPILUMAB
     Indication: Arthritis
  4. DUPIXENT [Suspect]
     Active Substance: DUPILUMAB
     Indication: Glaucoma
  5. DUPIXENT [Suspect]
     Active Substance: DUPILUMAB
     Indication: Neoplasm malignant
  6. DUPIXENT [Suspect]
     Active Substance: DUPILUMAB
     Indication: Dermatitis
  7. ADVIL [Concomitant]
     Active Substance: IBUPROFEN
  8. TYLENOL EXTRA STRENGTH [Concomitant]
     Active Substance: ACETAMINOPHEN
  9. ESOMEPRAZOLE MAGNESIUM [Concomitant]
     Active Substance: ESOMEPRAZOLE MAGNESIUM
  10. VITAMIN C [Concomitant]
     Active Substance: ASCORBIC ACID
  11. SYSTANE (HYPROMELLOSE 2910 (4000 MPA.S)) [Concomitant]
     Active Substance: HYPROMELLOSE 2910 (4000 MPA.S)
  12. VITAMIN D3 [Concomitant]
     Active Substance: CHOLECALCIFEROL
  13. TIMOLOL [Concomitant]
     Active Substance: TIMOLOL
  14. CALCIUM [Concomitant]
     Active Substance: CALCIUM
  15. MELATONIN [Concomitant]
     Active Substance: MELATONIN
  16. SIMVASTATIN [Concomitant]
     Active Substance: SIMVASTATIN
  17. LEVOTHYROXINE SODIUM [Concomitant]
     Active Substance: LEVOTHYROXINE SODIUM
  18. TRAZODONE HCL [Concomitant]
     Active Substance: TRAZODONE HYDROCHLORIDE

REACTIONS (2)
  - Alopecia [Unknown]
  - Product use in unapproved indication [Unknown]

NARRATIVE: CASE EVENT DATE: 20241001
